FAERS Safety Report 5921469-7 (Version None)
Quarter: 2008Q4

REPORT INFORMATION
  Report Type: 
  Country: None (occurrence: None)
  Receive Date: 20081016
  Receipt Date: 20081016
  Transmission Date: 20090506
  Serious: Yes (Other)
  Sender: FDA-Public Use
  Company Number: None

PATIENT
  Age: 69 Year
  Sex: Male
  Weight: 81.6475 kg

DRUGS (1)
  1. TRELSTAR LA [Suspect]
     Indication: PROSTATE CANCER
     Dosage: INJECTION
     Dates: start: 20080808

REACTIONS (2)
  - MUSCULOSKELETAL PAIN [None]
  - PAIN [None]
